FAERS Safety Report 9350810 (Version 1)
Quarter: 2013Q2

REPORT INFORMATION
  Report Type: Spontaneous
  Country: TR (occurrence: TR)
  Receive Date: 20130617
  Receipt Date: 20130617
  Transmission Date: 20140414
  Serious: Yes (Hospitalization)
  Sender: FDA-Public Use
  Company Number: TR-MYLANLABS-2013S1012191

PATIENT
  Age: 51 Year
  Sex: Female

DRUGS (4)
  1. IRINOTECAN [Suspect]
     Indication: ADENOCARCINOMA OF COLON
  2. CALCIUM FOLINATE [Concomitant]
  3. 5-FU [Concomitant]
  4. ALTUZAN [Concomitant]

REACTIONS (5)
  - Malaise [Unknown]
  - Respiratory distress [Unknown]
  - Pyrexia [Unknown]
  - Tremor [Unknown]
  - Presyncope [Unknown]
